FAERS Safety Report 4575680-0 (Version None)
Quarter: 2005Q1

REPORT INFORMATION
  Report Type: 
  Country: None (occurrence: None)
  Receive Date: 20050127
  Receipt Date: 20041020
  Transmission Date: 20050727
  Serious: No
  Sender: FDA-Public Use
  Company Number: USA041081815

PATIENT
  Sex: Female

DRUGS (1)
  1. STRATTERA [Suspect]

REACTIONS (3)
  - DEAFNESS [None]
  - OEDEMA MOUTH [None]
  - SWOLLEN TONGUE [None]
